FAERS Safety Report 13464192 (Version 1)
Quarter: 2017Q2

REPORT INFORMATION
  Report Type: Spontaneous
  Country: US (occurrence: US)
  Receive Date: 20170420
  Receipt Date: 20170420
  Transmission Date: 20170830
  Serious: Yes (Other)
  Sender: FDA-Public Use
  Company Number: US-ROCHE-665909

PATIENT
  Age: 17 Year
  Sex: Male
  Weight: 67.1 kg

DRUGS (8)
  1. ACCUTANE [Suspect]
     Active Substance: ISOTRETINOIN
     Route: 065
  2. AMNESTEEM [Suspect]
     Active Substance: ISOTRETINOIN
     Indication: ACNE
     Route: 065
     Dates: start: 20030715, end: 20030914
  3. ACCUTANE [Suspect]
     Active Substance: ISOTRETINOIN
     Indication: ACNE
     Dosage: STRENGTH: 20 MG AND 40 MG
     Route: 065
  4. ACCUTANE [Suspect]
     Active Substance: ISOTRETINOIN
     Route: 065
     Dates: start: 20040623, end: 20040716
  5. ACCUTANE [Suspect]
     Active Substance: ISOTRETINOIN
     Route: 065
  6. AMNESTEEM [Suspect]
     Active Substance: ISOTRETINOIN
     Route: 065
  7. ACCUTANE [Suspect]
     Active Substance: ISOTRETINOIN
     Route: 065
  8. ZITHROMAX [Concomitant]
     Active Substance: AZITHROMYCIN DIHYDRATE
     Route: 065

REACTIONS (5)
  - Oral herpes [Unknown]
  - Contusion [Unknown]
  - Colitis [Not Recovered/Not Resolved]
  - Inflammatory bowel disease [Unknown]
  - Bone contusion [Unknown]

NARRATIVE: CASE EVENT DATE: 20030417
